FAERS Safety Report 23688830 (Version 1)
Quarter: 2024Q1

REPORT INFORMATION
  Report Type: Spontaneous
  Country: US (occurrence: US)
  Receive Date: 20240329
  Receipt Date: 20240329
  Transmission Date: 20240410
  Serious: No
  Sender: FDA-Public Use
  Company Number: US-GILEAD-2024-0666499

PATIENT
  Sex: Male

DRUGS (1)
  1. VEMLIDY [Suspect]
     Active Substance: TENOFOVIR ALAFENAMIDE FUMARATE
     Indication: Hepatic cirrhosis
     Dosage: UNK
     Route: 065
     Dates: start: 202104

REACTIONS (1)
  - Genotype drug resistance test positive [Unknown]
